FAERS Safety Report 9547753 (Version 3)
Quarter: 2014Q1

REPORT INFORMATION
  Report Type: Report from Study
  Country: US (occurrence: US)
  Receive Date: 20130924
  Receipt Date: 20140127
  Transmission Date: 20141002
  Serious: Yes (Other)
  Sender: FDA-Public Use
  Company Number: US-ABBVIE-13P-163-1148223-00

PATIENT
  Age: 67 Year
  Sex: Female

DRUGS (1)
  1. HUMIRA [Suspect]
     Indication: PSORIASIS
     Route: 058
     Dates: start: 200605

REACTIONS (4)
  - Retinal haemorrhage [Unknown]
  - Diabetes mellitus [Unknown]
  - Macular degeneration [Unknown]
  - Diabetic retinopathy [Not Recovered/Not Resolved]
